FAERS Safety Report 23954954 (Version 1)
Quarter: 2024Q2

REPORT INFORMATION
  Report Type: Spontaneous
  Country: CN (occurrence: CN)
  Receive Date: 20240610
  Receipt Date: 20240610
  Transmission Date: 20240716
  Serious: Yes (Other)
  Sender: FDA-Public Use
  Company Number: CN-JNJFOC-20240600931

PATIENT

DRUGS (9)
  1. SIRTURO [Suspect]
     Active Substance: BEDAQUILINE FUMARATE
     Indication: Product used for unknown indication
     Dosage: 100MG * 24 TABLETS/BOX
     Route: 065
     Dates: start: 20200608
  2. LINEZOLID [Suspect]
     Active Substance: LINEZOLID
     Route: 065
     Dates: start: 20200506
  3. LINEZOLID [Suspect]
     Active Substance: LINEZOLID
     Route: 065
  4. LINEZOLID [Suspect]
     Active Substance: LINEZOLID
     Route: 065
  5. CLOFAZIMINE [Suspect]
     Active Substance: CLOFAZIMINE
     Indication: Product used for unknown indication
     Route: 065
     Dates: start: 20200506
  6. CAPREOMYCIN [Suspect]
     Active Substance: CAPREOMYCIN
     Indication: Product used for unknown indication
     Route: 065
     Dates: start: 20200506, end: 202105
  7. MEROPENEM [Suspect]
     Active Substance: MEROPENEM
     Indication: Product used for unknown indication
     Route: 065
     Dates: start: 20200506, end: 202105
  8. AMOXICILLIN\CLAVULANATE POTASSIUM [Suspect]
     Active Substance: AMOXICILLIN\CLAVULANATE POTASSIUM
     Indication: Product used for unknown indication
     Route: 065
     Dates: start: 20200506, end: 202105
  9. AMINOSALICYLATE SODIUM [Suspect]
     Active Substance: AMINOSALICYLATE SODIUM
     Indication: Product used for unknown indication
     Route: 065
     Dates: start: 20200506, end: 202110

REACTIONS (7)
  - Hemihypoaesthesia [Unknown]
  - Hypoaesthesia [Unknown]
  - Visual impairment [Unknown]
  - Diarrhoea [Unknown]
  - Decreased appetite [Unknown]
  - Marasmus [Unknown]
  - Gastrointestinal disorder [Unknown]

NARRATIVE: CASE EVENT DATE: 20210301
